FAERS Safety Report 10310109 (Version 2)
Quarter: 2015Q3

REPORT INFORMATION
  Report Type: Spontaneous
  Country: GB (occurrence: GB)
  Receive Date: 20140717
  Receipt Date: 20150710
  Transmission Date: 20151125
  Serious: Yes (Death, Hospitalization)
  Sender: FDA-Public Use
  Company Number: GB-RANBAXY-2014RR-83585

PATIENT

DRUGS (28)
  1. BACLOFEN. [Suspect]
     Active Substance: BACLOFEN
     Indication: CEREBROVASCULAR ACCIDENT
  2. CO-DYDRAMOL [Suspect]
     Active Substance: ACETAMINOPHEN\DIHYDROCODEINE
     Indication: ANALGESIC THERAPY
     Dosage: 2000 MG, UNK
     Route: 048
     Dates: start: 20140109
  3. SERTRALINE [Suspect]
     Active Substance: SERTRALINE HYDROCHLORIDE
     Indication: DEPRESSION
     Dosage: 50 MG, UNK
     Route: 048
     Dates: start: 20121210, end: 20140101
  4. SILDENAFIL. [Suspect]
     Active Substance: SILDENAFIL
     Indication: ERECTILE DYSFUNCTION
     Dosage: 50 MG, UNK
     Route: 048
     Dates: start: 20130220
  5. LIORESAL [Suspect]
     Active Substance: BACLOFEN
     Dosage: 172.03 ?G, DAILY
     Route: 037
     Dates: start: 20140122, end: 20140122
  6. LIORESAL [Suspect]
     Active Substance: BACLOFEN
     Dosage: 207.44 ?G, DAILY
     Route: 037
     Dates: start: 20140207, end: 20140224
  7. VENLAFAXINE [Suspect]
     Active Substance: VENLAFAXINE HYDROCHLORIDE
     Indication: DEPRESSION
     Dosage: 75 MG, UNK
     Route: 048
     Dates: start: 20140226
  8. LIORESAL [Suspect]
     Active Substance: BACLOFEN
     Dosage: 297.42 ?G, DAILY
     Route: 037
     Dates: start: 20140121, end: 20140203
  9. LIORESAL [Suspect]
     Active Substance: BACLOFEN
     Indication: MUSCLE SPASTICITY
     Dosage: 100 ?G, DAILY
     Route: 037
     Dates: start: 20140117, end: 20140119
  10. LIORESAL [Suspect]
     Active Substance: BACLOFEN
     Dosage: 227.52 ?G, DAILY
     Route: 037
     Dates: start: 20140225, end: 20140225
  11. LIORESAL [Suspect]
     Active Substance: BACLOFEN
     Indication: MUSCLE SPASTICITY
     Dosage: INCREASE THE BACLOFEN TRITATION BY 20%
     Route: 037
     Dates: start: 20140120
  12. ZOPICLONE [Suspect]
     Active Substance: ZOPICLONE
     Indication: INSOMNIA
     Dosage: 3.75 MG, UNK
     Route: 048
     Dates: start: 20130220
  13. LIORESAL [Suspect]
     Active Substance: BACLOFEN
     Indication: CEREBROVASCULAR ACCIDENT
     Dosage: 120.13 ?G, DAILY
     Route: 037
     Dates: start: 20140120, end: 20140120
  14. LIORESAL [Suspect]
     Active Substance: BACLOFEN
     Dosage: 248.72 ?G, DAILY
     Route: 037
     Dates: start: 20140128, end: 20140130
  15. LIORESAL [Suspect]
     Active Substance: BACLOFEN
     Dosage: 249.98 ?G, DAILY
     Route: 037
     Dates: start: 20140226, end: 20140310
  16. LIORESAL [Suspect]
     Active Substance: BACLOFEN
     Indication: MUSCLE SPASTICITY
     Dosage: 274.29 ?G, DAILY
     Route: 037
     Dates: start: 20140311
  17. BACLOFEN. [Suspect]
     Active Substance: BACLOFEN
     Indication: MUSCLE SPASTICITY
     Dosage: 60 MG, UNK
     Route: 048
     Dates: start: 20120801, end: 20140120
  18. LIORESAL [Suspect]
     Active Substance: BACLOFEN
     Dosage: 143.94 ?G, DAILY
     Route: 037
     Dates: start: 20140121, end: 20140121
  19. LIORESAL [Suspect]
     Active Substance: BACLOFEN
     Dosage: 207.44 ?G, DAILY
     Route: 037
     Dates: start: 20140123, end: 20140127
  20. LIORESAL [Suspect]
     Active Substance: BACLOFEN
     Indication: CEREBROVASCULAR ACCIDENT
     Dosage: 274 ?G, DAILY
     Route: 037
     Dates: start: 20140311
  21. AMLODIPINE [Suspect]
     Active Substance: AMLODIPINE BESYLATE
     Indication: HYPERTENSION
     Dosage: 30 MG, UNK
     Route: 048
     Dates: start: 20120705
  22. PARACETAMOL [Suspect]
     Active Substance: ACETAMINOPHEN
     Indication: ANALGESIC THERAPY
     Dosage: 1000 MG, PRN
     Route: 048
     Dates: start: 20121112
  23. LIORESAL [Suspect]
     Active Substance: BACLOFEN
     Dosage: 248.72 ?G, DAILY
     Route: 037
     Dates: start: 20140204, end: 20140206
  24. LIORESAL [Suspect]
     Active Substance: BACLOFEN
     Indication: CEREBROVASCULAR ACCIDENT
     Dosage: 207 ?G, 500 MCG/ML/CONCENTRATION 10 MG/20 ML
     Route: 037
  25. MIRTAZAPINE. [Suspect]
     Active Substance: MIRTAZAPINE
     Indication: PRODUCT USED FOR UNKNOWN INDICATION
     Dosage: UNK
     Route: 065
     Dates: start: 20140522
  26. IBUPROFEN. [Suspect]
     Active Substance: IBUPROFEN
     Indication: ANALGESIC THERAPY
     Dosage: 1200 MG, UNK
     Route: 048
     Dates: start: 20140109
  27. METOPROLOL [Suspect]
     Active Substance: METOPROLOL
     Indication: HYPERTENSION
     Dosage: 300 MG, UNK
     Route: 048
     Dates: start: 20120705
  28. RAMIPRIL. [Suspect]
     Active Substance: RAMIPRIL
     Indication: HYPERTENSION
     Dosage: 2.5 MG, UNK
     Route: 048
     Dates: start: 20140113

REACTIONS (30)
  - Blood ethanol increased [Unknown]
  - Stress [Unknown]
  - Mental disorder [Unknown]
  - Self injurious behaviour [Unknown]
  - Pain in extremity [Unknown]
  - Erectile dysfunction [Unknown]
  - Pain [Unknown]
  - Pulmonary oedema [Unknown]
  - Macrophages increased [Unknown]
  - Insomnia [Unknown]
  - Alcohol poisoning [Fatal]
  - Hepatic steatosis [Unknown]
  - Petechiae [Unknown]
  - Wound dehiscence [Unknown]
  - Anxiety [Unknown]
  - Implant site extravasation [Unknown]
  - Onychomycosis [Unknown]
  - Cardiomegaly [Unknown]
  - Pulmonary congestion [Unknown]
  - Scratch [Unknown]
  - Sudden death [Fatal]
  - Condition aggravated [Unknown]
  - Implant site infection [Unknown]
  - Fall [Unknown]
  - Purulent discharge [Unknown]
  - Conjunctival hyperaemia [Unknown]
  - Toxicity to various agents [Unknown]
  - Neutrophil count increased [Unknown]
  - Scar [Unknown]
  - Depression [Unknown]

NARRATIVE: CASE EVENT DATE: 20140611
